FAERS Safety Report 11211994 (Version 1)
Quarter: 2015Q2

REPORT INFORMATION
  Report Type: Spontaneous
  Country: FR (occurrence: FR)
  Receive Date: 20150623
  Receipt Date: 20150623
  Transmission Date: 20150821
  Serious: Yes (Life-Threatening, Hospitalization, Other)
  Sender: FDA-Public Use
  Company Number: FR-PFIZER INC-2015203785

PATIENT
  Age: 61 Year
  Sex: Female

DRUGS (7)
  1. LEPTICUR [Concomitant]
     Active Substance: TROPATEPINE HYDROCHLORIDE
     Dosage: 10 MG, 1X/DAY IN THE MORNING
     Dates: end: 20150402
  2. VALIUM [Interacting]
     Active Substance: DIAZEPAM
     Dosage: 1 MG, 1X/DAY IN THE EVENING
     Route: 048
     Dates: end: 20150402
  3. PRODILANTIN [Suspect]
     Active Substance: FOSPHENYTOIN SODIUM
     Indication: STATUS EPILEPTICUS
     Dosage: 1000 MG, 1X/DAY
     Route: 042
     Dates: start: 20150402, end: 20150402
  4. RISPERDAL [Concomitant]
     Active Substance: RISPERIDONE
     Dosage: 2 MG, 3X/DAY
     Route: 048
     Dates: end: 20150402
  5. RIVOTRIL [Interacting]
     Active Substance: CLONAZEPAM
     Indication: STATUS EPILEPTICUS
     Dosage: 2 MG (2 DF), 1X/DAY
     Route: 042
     Dates: start: 20150402, end: 20150402
  6. TERCIAN [Concomitant]
     Active Substance: CYAMEMAZINE
     Dosage: 0.5 DF IN MORNING AND 1 DF IN EVENING
     Route: 048
     Dates: end: 20150402
  7. PRODILANTIN [Interacting]
     Active Substance: FOSPHENYTOIN SODIUM
     Dosage: 250 MG PER 24 HOUR
     Route: 042
     Dates: start: 20150402, end: 20150402

REACTIONS (5)
  - Drug interaction [Recovered/Resolved]
  - Cardio-respiratory arrest [Recovered/Resolved]
  - Bradycardia [Recovered/Resolved]
  - Anaemia [Unknown]
  - Conduction disorder [Recovered/Resolved]

NARRATIVE: CASE EVENT DATE: 20150402
